FAERS Safety Report 8760691 (Version 1)
Quarter: 2012Q4

REPORT INFORMATION
  Report Type: 
  Country: KP (occurrence: KP)
  Receive Date: 20120830
  Receipt Date: 20120830
  Transmission Date: 20130627
  Serious: Yes (Other)
  Sender: FDA-Public Use
  Company Number: KP-ROXANE LABORATORIES, INC.-2012-RO-01756RO

PATIENT
  Age: 80 Year
  Sex: Female

DRUGS (1)
  1. AMLODIPINE [Suspect]
     Indication: HYPERTENSION

REACTIONS (1)
  - Pemphigoid [Recovered/Resolved]
